FAERS Safety Report 6950720-X (Version None)
Quarter: 2010Q3

REPORT INFORMATION
  Report Type: 
  Country: None (occurrence: None)
  Receive Date: 20100828
  Receipt Date: 20100218
  Transmission Date: 20110219
  Serious: No
  Sender: FDA-Public Use
  Company Number: US-ABBOTT-10P-163-0628401-00

PATIENT
  Sex: Male
  Weight: 91.708 kg

DRUGS (6)
  1. NIASPAN [Suspect]
     Indication: HIGH DENSITY LIPOPROTEIN DECREASED
     Dates: start: 20091101, end: 20091201
  2. NIASPAN [Suspect]
     Dosage: BROKE IN 1/2 TABLET
     Dates: start: 20091201
  3. ZOCOR [Concomitant]
     Indication: BLOOD CHOLESTEROL INCREASED
  4. PLAVIX [Concomitant]
     Indication: CORONARY ARTERIAL STENT INSERTION
  5. METOPROLOL [Concomitant]
     Indication: HYPERTENSION
  6. ASPIRIN [Concomitant]
     Indication: CARDIAC DISORDER

REACTIONS (3)
  - HAEMORRHAGE [None]
  - PRURITUS [None]
  - WRONG TECHNIQUE IN DRUG USAGE PROCESS [None]
